FAERS Safety Report 6773095-8 (Version None)
Quarter: 2010Q2

REPORT INFORMATION
  Report Type: 
  Country: None (occurrence: None)
  Receive Date: 20100616
  Receipt Date: 20100528
  Transmission Date: 20101027
  Serious: Yes (Other)
  Sender: FDA-Public Use
  Company Number: JP-PFIZER INC-2010062588

PATIENT
  Age: 66 Year
  Sex: Male

DRUGS (2)
  1. ZITHROMAX [Suspect]
     Indication: BRONCHITIS
     Dosage: 500 MG/DAY
     Route: 048
     Dates: start: 20100430
  2. NORVASC [Concomitant]
     Dosage: UNK
     Route: 048

REACTIONS (1)
  - MYOSCLEROSIS [None]
